FAERS Safety Report 10749426 (Version 2)
Quarter: 2015Q1

REPORT INFORMATION
  Report Type: Report from Study
  Country: BR (occurrence: BR)
  Receive Date: 20150129
  Receipt Date: 20150203
  Transmission Date: 20150721
  Serious: Yes (Death, Hospitalization, Other)
  Sender: FDA-Public Use
  Company Number: BR-ABBVIE-15K-020-1339243-00

PATIENT
  Age: 86 Year
  Sex: Male
  Weight: 80 kg

DRUGS (5)
  1. HUMIRA [Suspect]
     Active Substance: ADALIMUMAB
     Indication: ANKYLOSING SPONDYLITIS
     Route: 058
     Dates: start: 2012, end: 201410
  2. METFORMIN [Concomitant]
     Active Substance: METFORMIN HYDROCHLORIDE
     Indication: DIABETES MELLITUS
  3. ENALAPRIL [Suspect]
     Active Substance: ENALAPRIL
     Indication: HYPERTENSION
     Route: 065
  4. LEVODOPA [Concomitant]
     Active Substance: LEVODOPA
     Indication: PARKINSON^S DISEASE
  5. CODEIN [Concomitant]
     Active Substance: CODEINE
     Indication: PAIN
     Route: 048
     Dates: end: 201409

REACTIONS (4)
  - Cerebrovascular accident [Fatal]
  - Cardiac failure congestive [Fatal]
  - Acute pulmonary oedema [Fatal]
  - Mitral valve incompetence [Fatal]

NARRATIVE: CASE EVENT DATE: 201410
